FAERS Safety Report 5966768-8 (Version None)
Quarter: 2008Q4

REPORT INFORMATION
  Report Type: 
  Country: None (occurrence: None)
  Receive Date: 20081119
  Receipt Date: 20080819
  Transmission Date: 20090506
  Serious: No
  Sender: FDA-Public Use
  Company Number: WAES 0808USA03674

PATIENT
  Age: 77 Year
  Sex: Male

DRUGS (3)
  1. JANUVIA [Suspect]
     Indication: PANCREATIC DISORDER
     Dosage: 100 MG/DAILY/PO
     Route: 048
     Dates: start: 20080701
  2. COREG [Concomitant]
  3. COZAAR [Concomitant]

REACTIONS (1)
  - DIZZINESS [None]
